FAERS Safety Report 7982926-5 (Version None)
Quarter: 2011Q4

REPORT INFORMATION
  Report Type: 
  Country: None (occurrence: None)
  Receive Date: 20111215
  Receipt Date: 20111130
  Transmission Date: 20120403
  Serious: Yes (Hospitalization)
  Sender: FDA-Public Use
  Company Number: NL-MEDIMMUNE-MEDI-0014102

PATIENT
  Sex: Female
  Weight: 5.115 kg

DRUGS (5)
  1. DOMPERIDONE MALEATE [Concomitant]
     Dates: start: 20110101
  2. RANITIDINE [Concomitant]
     Dates: start: 20110101
  3. LACTULOSE [Concomitant]
     Dates: start: 20110101
  4. SYNAGIS [Suspect]
     Indication: PREMATURE BABY
     Dates: start: 20111003, end: 20111102
  5. SYNAGIS [Suspect]
     Dates: start: 20111130, end: 20111130

REACTIONS (3)
  - HYPOVENTILATION [None]
  - GASTROOESOPHAGEAL REFLUX DISEASE [None]
  - CHOKING [None]
